FAERS Safety Report 8506682-7 (Version None)
Quarter: 2012Q3

REPORT INFORMATION
  Report Type: 
  Country: None (occurrence: None)
  Receive Date: 20120712
  Receipt Date: 20110816
  Transmission Date: 20120928
  Serious: No
  Sender: FDA-Public Use
  Company Number: US-BAYER-2011-073906

PATIENT
  Sex: Female

DRUGS (2)
  1. MAGNEVIST [Suspect]
     Indication: NUCLEAR MAGNETIC RESONANCE IMAGING BREAST
     Dosage: 13 ML, UNK
     Dates: start: 20110816, end: 20110816
  2. SODIUM BICARBONATE [Concomitant]
     Dosage: 30 ML, UNK
     Dates: start: 20110816, end: 20110816

REACTIONS (1)
  - NO ADVERSE EVENT [None]
